FAERS Safety Report 4928557-2 (Version None)
Quarter: 2006Q1

REPORT INFORMATION
  Report Type: 
  Country: None (occurrence: None)
  Receive Date: 20060223
  Receipt Date: 20060208
  Transmission Date: 20060701
  Serious: Yes (Hospitalization)
  Sender: FDA-Public Use
  Company Number: 2006000315

PATIENT
  Age: 65 Year
  Sex: Female

DRUGS (3)
  1. ERLOTINIB HCL (TABLET) [Suspect]
     Indication: OVARIAN CANCER
     Dosage: SEE IMAGE
     Route: 048
     Dates: start: 20051215
  2. ERLOTINIB HCL (TABLET) [Suspect]
     Indication: OVARIAN CANCER
     Dosage: SEE IMAGE
     Route: 048
     Dates: start: 20060101
  3. BEVACIZUMAB (INJECTION FOR INFUSION) [Suspect]
     Indication: OVARIAN CANCER
     Dosage: QOW, INTRAVENOUS
     Route: 042
     Dates: start: 20051215

REACTIONS (6)
  - ABDOMINAL DISTENSION [None]
  - DIARRHOEA [None]
  - DYSPNOEA [None]
  - PLEURAL EFFUSION [None]
  - PNEUMONIA [None]
  - PULMONARY EMBOLISM [None]
